FAERS Safety Report 11997696 (Version 1)
Quarter: 2016Q1

REPORT INFORMATION
  Report Type: Spontaneous
  Country: DE (occurrence: DE)
  Receive Date: 20160203
  Receipt Date: 20160203
  Transmission Date: 20160526
  Serious: Yes (Life-Threatening, Hospitalization)
  Sender: FDA-Public Use
  Company Number: GXKR2016DE000786

PATIENT

DRUGS (3)
  1. LACOSAMIDE [Concomitant]
     Active Substance: LACOSAMIDE
     Indication: EPILEPSY
     Dosage: 100 MG, BID
     Route: 048
  2. LEVETIRACETAM. [Concomitant]
     Active Substance: LEVETIRACETAM
     Indication: EPILEPSY
     Dosage: 1000 MG, BID
     Route: 048
  3. CLOZAPINE. [Suspect]
     Active Substance: CLOZAPINE
     Indication: SCHIZOPHRENIA
     Dosage: 50-0-150 MG
     Route: 048

REACTIONS (3)
  - Hypothermia [Recovered/Resolved]
  - Thrombocytopenia [Recovered/Resolved]
  - Leukopenia [Recovered/Resolved]

NARRATIVE: CASE EVENT DATE: 20160110
